FAERS Safety Report 5095847-5 (Version None)
Quarter: 2006Q3

REPORT INFORMATION
  Report Type: 
  Country: None (occurrence: None)
  Receive Date: 20060905
  Receipt Date: 20060825
  Transmission Date: 20061208
  Serious: Yes (Hospitalization)
  Sender: FDA-Public Use
  Company Number: PHFR2006GB02671

PATIENT
  Age: 30 Year
  Sex: Female

DRUGS (4)
  1. CLOZARIL [Suspect]
     Indication: SCHIZOPHRENIA
     Dosage: 325MG DAILY
     Route: 048
     Dates: start: 20051228
  2. CLOZARIL [Suspect]
     Dosage: 1400 MG, ONCE/SINGLE
     Route: 048
  3. VENLAFAXINE HCL [Suspect]
     Dosage: OVERDOSE OF 11 X 75MG TABLETS
     Route: 048
  4. ALCOHOL [Suspect]
     Route: 065

REACTIONS (3)
  - AGITATION [None]
  - HYPERTHERMIA MALIGNANT [None]
  - OVERDOSE [None]
